FAERS Safety Report 10184689 (Version 2)
Quarter: 2014Q2

REPORT INFORMATION
  Report Type: Spontaneous
  Country: US (occurrence: None)
  Receive Date: 20140519
  Receipt Date: 20140616
  Transmission Date: 20141212
  Serious: Yes (Hospitalization)
  Sender: FDA-Public Use
  Company Number: US-001023

PATIENT
  Age: 33 Year
  Sex: Female

DRUGS (8)
  1. GATTEX [Suspect]
     Indication: SHORT-BOWEL SYNDROME
     Dosage: (0.48 ML QD, STREN/VOLM: 0.48 ML | FREQ: 1 X DAY SUBCUTANEOUS)
     Route: 058
     Dates: start: 20140314, end: 20140424
  2. GABAPENTIN [Concomitant]
  3. DILAUDID [Concomitant]
  4. LORAZEPAM [Concomitant]
  5. IMODIUM [Concomitant]
  6. AMBIEN [Concomitant]
  7. APRIL /000227701/ [Concomitant]
  8. TYLENOL /00020001/ [Concomitant]

REACTIONS (4)
  - Pain [None]
  - Elective surgery [None]
  - Adhesion [None]
  - Endometriosis [None]
